FAERS Safety Report 16798347 (Version 1)
Quarter: 2019Q4

REPORT INFORMATION
  Report Type: Spontaneous
  Country: US (occurrence: US)
  Receive Date: 20190911
  Receipt Date: 20190911
  Transmission Date: 20200122
  Serious: Yes (Hospitalization)
  Sender: FDA-Public Use
  Company Number: None

PATIENT
  Age: 49 Year
  Sex: Female

DRUGS (9)
  1. STELARA [Suspect]
     Active Substance: USTEKINUMAB
     Indication: CROHN^S DISEASE
     Dosage: ?          OTHER FREQUENCY:EVERY 4 WEEKS;?
     Route: 058
  2. LIPITOR 10MG TAB [Concomitant]
     Dates: start: 20180418
  3. REQUIP 2MG TAB [Concomitant]
     Dates: start: 20180418
  4. ADIPEX-P 37.5MG TAB [Concomitant]
     Dates: start: 20180418
  5. PAXIL 40MG TAB [Concomitant]
     Dates: start: 20180418
  6. IRON 325MG TAB [Concomitant]
     Dates: start: 20180418
  7. MULTI-VITAMIN TAB [Concomitant]
     Dates: start: 20180418
  8. PROBIOTIC CAP [Concomitant]
     Dates: start: 20180418
  9. TOPAMAX 100MG TAB [Concomitant]
     Dates: start: 20180418

REACTIONS (1)
  - Abdominal operation [None]

NARRATIVE: CASE EVENT DATE: 20190831
